FAERS Safety Report 5226847-X (Version None)
Quarter: 2007Q1

REPORT INFORMATION
  Report Type: 
  Country: None (occurrence: None)
  Receive Date: 20070130
  Receipt Date: 20070111
  Transmission Date: 20070707
  Serious: Yes (Hospitalization)
  Sender: FDA-Public Use
  Company Number: 235418

PATIENT
  Age: 52 Year
  Sex: Male
  Weight: 67 kg

DRUGS (7)
  1. AVASTIN [Suspect]
     Indication: NEOPLASM MALIGNANT
     Dosage: SEE IMAGE
     Route: 042
     Dates: start: 20060713
  2. AVASTIN [Suspect]
     Indication: NEOPLASM MALIGNANT
     Dosage: SEE IMAGE
     Route: 042
     Dates: start: 20060920
  3. SOLU-MEDROL [Suspect]
     Dates: start: 20060713
  4. KYTRIL [Concomitant]
  5. CARBOPLATIN [Concomitant]
  6. TAXOL [Concomitant]
  7. RANITIDINE HCL [Concomitant]

REACTIONS (6)
  - ALANINE AMINOTRANSFERASE INCREASED [None]
  - ASPARTATE AMINOTRANSFERASE INCREASED [None]
  - CHOLESTASIS [None]
  - CONDITION AGGRAVATED [None]
  - CYTOLYTIC HEPATITIS [None]
  - HEPATITIS B [None]
